FAERS Safety Report 10414901 (Version 1)
Quarter: 2014Q3

REPORT INFORMATION
  Report Type: Spontaneous
  Country: US (occurrence: US)
  Receive Date: 20140828
  Receipt Date: 20140828
  Transmission Date: 20150326
  Serious: Yes (Other)
  Sender: FDA-Public Use
  Company Number: US-UNITED THERAPEUTICS-UNT-2014-006245

PATIENT
  Sex: Female
  Weight: 56.92 kg

DRUGS (1)
  1. TYVASO [Suspect]
     Active Substance: TREPROSTINIL
     Indication: COR PULMONALE
     Dosage: 18-54 ?G,QID
     Dates: start: 20140405

REACTIONS (1)
  - Ulcer [Unknown]

NARRATIVE: CASE EVENT DATE: 2014
